FAERS Safety Report 11428556 (Version 1)
Quarter: 2015Q3

REPORT INFORMATION
  Report Type: Spontaneous
  Country: US (occurrence: US)
  Receive Date: 20150828
  Receipt Date: 20150828
  Transmission Date: 20151125
  Serious: No
  Sender: FDA-Public Use
  Company Number: US-ROCHE-1230225

PATIENT
  Age: 60 Year
  Sex: Male

DRUGS (3)
  1. INCIVEK [Suspect]
     Active Substance: TELAPREVIR
     Indication: HEPATITIS
     Route: 065
  2. PEGASYS [Suspect]
     Active Substance: PEGINTERFERON ALFA-2A
     Indication: HEPATITIS
     Route: 065
  3. RIBAVIRIN. [Suspect]
     Active Substance: RIBAVIRIN
     Indication: HEPATITIS
     Route: 065

REACTIONS (1)
  - Furuncle [Unknown]
